FAERS Safety Report 4631047-8 (Version None)
Quarter: 2005Q2

REPORT INFORMATION
  Report Type: 
  Country: None (occurrence: None)
  Receive Date: 20050406
  Receipt Date: 20050317
  Transmission Date: 20051028
  Serious: Yes (Hospitalization, Other)
  Sender: FDA-Public Use
  Company Number: USA050393741

PATIENT
  Age: 54 Year
  Sex: Female

DRUGS (1)
  1. ZYPREXA [Suspect]
     Dosage: 10 MG DAY
     Dates: start: 20031001, end: 20050309

REACTIONS (2)
  - CONTUSION [None]
  - PLATELET COUNT DECREASED [None]
